FAERS Safety Report 4768099-0 (Version None)
Quarter: 2005Q3

REPORT INFORMATION
  Report Type: 
  Country: None (occurrence: None)
  Receive Date: 20050912
  Receipt Date: 20050912
  Transmission Date: 20060218
  Serious: Yes (Other)
  Sender: FDA-Public Use
  Company Number: None

PATIENT
  Age: 41 Year
  Sex: Female
  Weight: 67.1324 kg

DRUGS (3)
  1. PAROXETINE HCL [Suspect]
     Indication: ANXIETY DISORDER
     Dates: start: 19930725, end: 20050910
  2. PAROXETINE HCL [Suspect]
     Indication: POSTPARTUM DEPRESSION
     Dates: start: 19930725, end: 20050910
  3. ALPRAZOLAM [Concomitant]

REACTIONS (2)
  - DRUG WITHDRAWAL SYNDROME [None]
  - DYSGEUSIA [None]
